FAERS Safety Report 14081120 (Version 2)
Quarter: 2017Q4

REPORT INFORMATION
  Report Type: Report from Study
  Country: PL (occurrence: PL)
  Receive Date: 20171012
  Receipt Date: 20171019
  Transmission Date: 20180321
  Serious: Yes (Other)
  Sender: FDA-Public Use
  Company Number: PL-BAUSCH-BL-2017-029127

PATIENT

DRUGS (3)
  1. RIBAVIRIN. [Suspect]
     Active Substance: RIBAVIRIN
     Indication: CHRONIC HEPATITIS C
     Dosage: GIVEN IN A FLAT- 800 MG (98 SUBJECTS) OR WEIGHT-BASED DOSE (18 SUBJECTS) 1000 MG/D IN SUBJECTS LESS
     Route: 065
  2. PEGINTERFERON ALFA-2A. [Suspect]
     Active Substance: PEGINTERFERON ALFA-2A
     Indication: CHRONIC HEPATITIS C
     Dosage: DOSED ACCORDING TO PRODUCT CHARACTERISTICS
     Route: 065
  3. PEGINTERFERON ALFA-2B [Suspect]
     Active Substance: PEGINTERFERON ALFA-2B
     Indication: CHRONIC HEPATITIS C
     Dosage: DOSED ACCORDING TO PRODUCT CHARACTERISTICS
     Route: 065

REACTIONS (1)
  - Drug ineffective [Unknown]
